FAERS Safety Report 10220996 (Version 1)
Quarter: 2014Q2

REPORT INFORMATION
  Report Type: Spontaneous
  Country: US (occurrence: None)
  Receive Date: 20140605
  Receipt Date: 20140605
  Transmission Date: 20141212
  Serious: Yes (Death)
  Sender: FDA-Public Use
  Company Number: None

PATIENT
  Age: 1 Month
  Sex: Female
  Weight: 83 kg

DRUGS (13)
  1. RIVAROXABAN [Suspect]
     Indication: ATRIAL FIBRILLATION
     Dosage: 1 TAB QD ORAL
     Route: 048
  2. ALPRAZOLAM [Concomitant]
  3. BUSPIRONE [Concomitant]
  4. PRAVASTATIN [Concomitant]
  5. NORCO [Concomitant]
  6. HYDROCODONE [Concomitant]
  7. PAROXETINE [Concomitant]
  8. AMIODARONE [Concomitant]
  9. FUROSEMIDE [Concomitant]
  10. DILTIAZEM [Concomitant]
  11. GABAPENTIN [Concomitant]
  12. CALCIUM [Concomitant]
  13. OMEPRAZOLE [Concomitant]

REACTIONS (5)
  - Abdominal pain [None]
  - Hypotension [None]
  - Confusional state [None]
  - Splenic rupture [None]
  - Peritoneal haemorrhage [None]
